FAERS Safety Report 8104039-4 (Version None)
Quarter: 2012Q1

REPORT INFORMATION
  Report Type: 
  Country: None (occurrence: None)
  Receive Date: 20120201
  Receipt Date: 20120126
  Transmission Date: 20120608
  Serious: Yes (Hospitalization, Disabling, Other)
  Sender: FDA-Public Use
  Company Number: US-PFIZER INC-2011153192

PATIENT
  Sex: Female

DRUGS (1)
  1. CHANTIX [Suspect]
     Indication: SMOKING CESSATION THERAPY
     Dosage: UNK
     Dates: start: 20070101, end: 20100401

REACTIONS (5)
  - COUGH [None]
  - CONVULSION [None]
  - ROAD TRAFFIC ACCIDENT [None]
  - MYOCARDIAL INFARCTION [None]
  - LOSS OF CONSCIOUSNESS [None]
